FAERS Safety Report 4363617-9 (Version None)
Quarter: 2004Q2

REPORT INFORMATION
  Report Type: 
  Country: None (occurrence: None)
  Receive Date: 20040524
  Receipt Date: 20040524
  Transmission Date: 20050107
  Serious: No
  Sender: FDA-Public Use
  Company Number: None

PATIENT
  Sex: Male
  Weight: 100.91 kg

DRUGS (2)
  1. ZYVOX [Suspect]
     Indication: ARTHRITIS INFECTIVE
     Dosage: ONE TABLET EVERY 12 H ORAL
     Route: 048
     Dates: start: 20040312, end: 20040326
  2. ZYVOX [Suspect]
     Indication: STAPHYLOCOCCAL INFECTION
     Dosage: ONE TABLET EVERY 12 H ORAL
     Route: 048
     Dates: start: 20040312, end: 20040326

REACTIONS (8)
  - CHILLS [None]
  - NAUSEA [None]
  - NIGHT SWEATS [None]
  - PLATELET COUNT DECREASED [None]
  - PYREXIA [None]
  - SELF-MEDICATION [None]
  - SINUSITIS [None]
  - WEIGHT DECREASED [None]
